FAERS Safety Report 4407468-5 (Version None)
Quarter: 2004Q3

REPORT INFORMATION
  Report Type: 
  Country: None (occurrence: None)
  Receive Date: 20040721
  Receipt Date: 20040706
  Transmission Date: 20050211
  Serious: Yes (Hospitalization, Other)
  Sender: FDA-Public Use
  Company Number: USA040771778

PATIENT
  Age: 75 Year
  Sex: Female

DRUGS (24)
  1. HUMALOG [Suspect]
     Dates: start: 20020101
  2. PROZAC [Suspect]
  3. COUMADIN [Concomitant]
  4. AMARYL [Concomitant]
  5. ATROVENT [Concomitant]
  6. PROVENTIL (SALBUTAMOL SULFATE) [Concomitant]
  7. FERROUS SULFATE TAB [Concomitant]
  8. LEVSIN (HYOSCYAMINE SULFATE) [Concomitant]
  9. LANTUS [Concomitant]
  10. LEXAPRO [Concomitant]
  11. GLUCOPHAGE [Concomitant]
  12. REGLAN [Concomitant]
  13. LOPRESSOR [Concomitant]
  14. REGLAN [Concomitant]
  15. LOPRESSOR [Concomitant]
  16. PREVACID [Concomitant]
  17. ZANTAC [Concomitant]
  18. MULTI-VITAMIN [Concomitant]
  19. TYLENOL [Concomitant]
  20. TRIAMCINOLONE ACETONIDE W/NYSTATIN [Concomitant]
  21. NYSTATIN [Concomitant]
  22. MILK OF MAGNESIA TAB [Concomitant]
  23. VITAMIN C [Concomitant]
  24. DEBROX (UREA HYDROGEN PEROXIDE) [Concomitant]

REACTIONS (2)
  - ADVERSE EVENT [None]
  - DRUG HYPERSENSITIVITY [None]
